FAERS Safety Report 7431975-4 (Version None)
Quarter: 2011Q2

REPORT INFORMATION
  Report Type: 
  Country: None (occurrence: None)
  Receive Date: 20110420
  Receipt Date: 20110420
  Transmission Date: 20111010
  Serious: Yes (Other)
  Sender: FDA-Public Use
  Company Number: None

PATIENT
  Age: 41 Year
  Sex: Female
  Weight: 128.2 kg

DRUGS (10)
  1. FISH OIL [Concomitant]
  2. VICTOZA [Suspect]
     Indication: WEIGHT DECREASED
     Dosage: 1.8MG ONCE DAILY SQ
     Route: 058
     Dates: start: 20110308, end: 20110412
  3. VICTOZA [Suspect]
     Indication: TYPE 2 DIABETES MELLITUS
     Dosage: 1.8MG ONCE DAILY SQ
     Route: 058
     Dates: start: 20110308, end: 20110412
  4. LISINOPRIL [Concomitant]
  5. SIMVASTATIN [Concomitant]
  6. LEVOTHYROXINE SODIUM [Concomitant]
  7. HYDROCHLOROTHIAZIDE [Concomitant]
  8. ACTOS [Concomitant]
  9. MULTI-VITAMIN [Concomitant]
  10. METFORMIN HYDROCHLORIDE [Concomitant]

REACTIONS (5)
  - INJECTION SITE PRURITUS [None]
  - NEEDLE ISSUE [None]
  - INJECTION SITE ERYTHEMA [None]
  - INJECTION SITE PAIN [None]
  - PRODUCT CONTAMINATION [None]
